FAERS Safety Report 5455111-9 (Version None)
Quarter: 2007Q3

REPORT INFORMATION
  Report Type: 
  Country: None (occurrence: None)
  Receive Date: 20070913
  Receipt Date: 20070913
  Transmission Date: 20080115
  Serious: Yes (Hospitalization)
  Sender: FDA-Public Use
  Company Number: None

PATIENT
  Sex: Female
  Weight: 57.27 kg

DRUGS (2)
  1. CISPLATIN [Suspect]
     Dosage: 78 MG
  2. DOXORUBICIN HYDROCHLORIDE [Suspect]
     Dosage: 47 MG

REACTIONS (14)
  - AGGRESSION [None]
  - CLOSTRIDIUM DIFFICILE TOXIN TEST POSITIVE [None]
  - DIARRHOEA [None]
  - FLIGHT OF IDEAS [None]
  - GRANDIOSITY [None]
  - HOMICIDAL IDEATION [None]
  - IMPULSIVE BEHAVIOUR [None]
  - MANIA [None]
  - NAUSEA [None]
  - PERSONALITY CHANGE [None]
  - PSYCHOTIC DISORDER [None]
  - SUICIDAL IDEATION [None]
  - THINKING ABNORMAL [None]
  - VOMITING [None]
